FAERS Safety Report 16198655 (Version 3)
Quarter: 2019Q2

REPORT INFORMATION
  Report Type: Report from Study
  Country: US (occurrence: US)
  Receive Date: 20190415
  Receipt Date: 20190514
  Transmission Date: 20190711
  Serious: Yes (Other)
  Sender: FDA-Public Use
  Company Number: US-BIOGEN-2019BI00723017

PATIENT
  Sex: Female

DRUGS (1)
  1. TYSABRI [Suspect]
     Active Substance: NATALIZUMAB
     Indication: MULTIPLE SCLEROSIS
     Route: 042
     Dates: start: 20180914, end: 20190301

REACTIONS (4)
  - Multiple sclerosis relapse [Unknown]
  - Meningitis [Not Recovered/Not Resolved]
  - Anxiety [Unknown]
  - Stress [Unknown]
